FAERS Safety Report 18565103 (Version 1)
Quarter: 2020Q4

REPORT INFORMATION
  Report Type: Other
  Country: US (occurrence: US)
  Receive Date: 20201201
  Receipt Date: 20201201
  Transmission Date: 20210114
  Serious: Yes (Hospitalization, Other)
  Sender: FDA-Public Use
  Company Number: US-ROCHE-2721904

PATIENT
  Sex: Female
  Weight: 63.11 kg

DRUGS (16)
  1. KLONOPIN [Suspect]
     Active Substance: CLONAZEPAM
     Indication: PRODUCT USED FOR UNKNOWN INDICATION
     Dosage: TAKE 1MG IN THE AM AND 0.5 MG IN THE AFTERNOON
     Route: 048
  2. ZOFRAN [Concomitant]
     Active Substance: ONDANSETRON HYDROCHLORIDE
     Route: 048
  3. ALBUTEROL SULFATE. [Concomitant]
     Active Substance: ALBUTEROL SULFATE
     Dosage: 0.083% INHALATION NEBULIZATION SOLUTION 1BIAL IN SNV EVERY 4-6 HOURS AS NEEDED.YOU?MAY USE ATROVENT
  4. CROMOLYN SODIUM. [Concomitant]
     Active Substance: CROMOLYN SODIUM
     Dosage: CONCENTRATE AS ORDERED BELOW TAKE 2 VIALS (10 ML ) 3 TIMES DAILY, 90 DAYS, 1 REFILL
  5. SYNTHROID [Concomitant]
     Active Substance: LEVOTHYROXINE SODIUM
     Route: 048
  6. XOLAIR [Suspect]
     Active Substance: OMALIZUMAB
     Route: 058
  7. TEGRETOL XR [Concomitant]
     Active Substance: CARBAMAZEPINE
     Dosage: 2 TABS TWICE DAILY
     Route: 048
  8. XOLAIR [Suspect]
     Active Substance: OMALIZUMAB
  9. KETOTIFEN [Concomitant]
     Active Substance: KETOTIFEN
     Dosage: ONCE A DAY
     Route: 048
  10. PULMICORT TURBUHALER [Concomitant]
     Active Substance: BUDESONIDE
     Route: 055
  11. XOLAIR [Suspect]
     Active Substance: OMALIZUMAB
     Indication: IDIOPATHIC URTICARIA
     Dosage: 150 MG EVERY 4 WEEKS, LAST INJECTION DATE - 07/MAY/2020
     Route: 058
  12. ACYCLOVIR. [Concomitant]
     Active Substance: ACYCLOVIR
     Route: 048
  13. CLOBETASOL PROPIONATE. [Concomitant]
     Active Substance: CLOBETASOL PROPIONATE
     Dosage: APPLY TO SEVERE RASH ON WRIST, LEGS AND ARMS TWICE DAILY., 30 DAYS, 0 REFILL
  14. RESTASIS [Concomitant]
     Active Substance: CYCLOSPORINE
  15. XOLAIR [Suspect]
     Active Substance: OMALIZUMAB
  16. DOXEPIN HCL [Concomitant]
     Active Substance: DOXEPIN HYDROCHLORIDE
     Dosage: TAKE 1 CAPSULES AT BED TIME, 0 DAYS

REACTIONS (28)
  - Conjunctivitis allergic [Unknown]
  - Bacteraemia [Unknown]
  - Angioedema [Unknown]
  - Leukopenia [Unknown]
  - Hypogammaglobulinaemia [Unknown]
  - Mast cell activation syndrome [Unknown]
  - Fatigue [Unknown]
  - Bradycardia [Unknown]
  - Vocal cord dysfunction [Unknown]
  - Depression [Unknown]
  - Post viral fatigue syndrome [Unknown]
  - Erythema [Unknown]
  - Oedema [Unknown]
  - Rhinorrhoea [Unknown]
  - Temporomandibular joint syndrome [Unknown]
  - Tachycardia [Unknown]
  - Anaphylactic reaction [Unknown]
  - Malnutrition [Unknown]
  - Herpes simplex [Unknown]
  - Vitamin D deficiency [Unknown]
  - Headache [Unknown]
  - Dermatitis [Unknown]
  - Mastocytosis [Unknown]
  - Urticaria [Unknown]
  - Asthma [Unknown]
  - Wheezing [Unknown]
  - Neck pain [Unknown]
  - Autoimmune thyroiditis [Unknown]
